FAERS Safety Report 6377705-9 (Version None)
Quarter: 2009Q3

REPORT INFORMATION
  Report Type: 
  Country: None (occurrence: None)
  Receive Date: 20090925
  Receipt Date: 20090917
  Transmission Date: 20100115
  Serious: Yes (Hospitalization)
  Sender: FDA-Public Use
  Company Number: JP-AVENTIS-200912137JP

PATIENT
  Age: 50 Year
  Sex: Female
  Weight: 41 kg

DRUGS (7)
  1. LANTUS [Suspect]
     Indication: DIABETES MELLITUS
     Dosage: DOSE: 24 UNITS
     Route: 058
     Dates: start: 20040115, end: 20040319
  2. LANTUS [Suspect]
     Dosage: DOSE: 30 UNITS
     Route: 058
     Dates: start: 20040319, end: 20050127
  3. LANTUS [Suspect]
     Dosage: DOSE: 18 UNITS
     Route: 058
     Dates: start: 20050128, end: 20080725
  4. GLUCOBAY [Concomitant]
     Indication: DIABETES MELLITUS
     Route: 048
     Dates: start: 20030911
  5. GASMOTIN [Concomitant]
     Dosage: DOSE: 1 TABLET X 3 TIMES/DAY
     Route: 048
     Dates: start: 20030911
  6. MUCOSTA [Concomitant]
     Dosage: DOSE: 1 TABLET X 3 TIMES/DAY
     Route: 048
     Dates: start: 20030717
  7. TAKEPRON [Concomitant]
     Dosage: DOSE: 1 TABLET
     Route: 048
     Dates: start: 20030717

REACTIONS (1)
  - BREAST CANCER [None]
